FAERS Safety Report 6656875-9 (Version None)
Quarter: 2010Q1

REPORT INFORMATION
  Report Type: 
  Country: None (occurrence: None)
  Receive Date: 20100329
  Receipt Date: 20100329
  Transmission Date: 20100710
  Serious: Yes (Disabling)
  Sender: FDA-Public Use
  Company Number: None

PATIENT
  Age: 52 Year
  Sex: Female
  Weight: 66.6788 kg

DRUGS (1)
  1. LEVAQUIN [Suspect]

REACTIONS (11)
  - AMNESIA [None]
  - CONFUSIONAL STATE [None]
  - COORDINATION ABNORMAL [None]
  - FALL [None]
  - FEELING OF DESPAIR [None]
  - GAIT DISTURBANCE [None]
  - JOINT SPRAIN [None]
  - OEDEMA PERIPHERAL [None]
  - SPEECH DISORDER [None]
  - TENDON DISORDER [None]
  - UPPER LIMB FRACTURE [None]
